FAERS Safety Report 5726487-X (Version None)
Quarter: 2008Q2

REPORT INFORMATION
  Report Type: 
  Country: None (occurrence: None)
  Receive Date: 20080502
  Receipt Date: 20080422
  Transmission Date: 20081010
  Serious: Yes (Death)
  Sender: FDA-Public Use
  Company Number: DE-GILEAD-2007-0011698

PATIENT
  Sex: Female
  Weight: 56 kg

DRUGS (12)
  1. TRUVADA [Suspect]
     Indication: HIV INFECTION
     Route: 048
     Dates: start: 20060125
  2. KALETRA [Suspect]
     Route: 048
     Dates: start: 20060125
  3. AMLODIPINE [Concomitant]
     Indication: HYPERTENSION
     Route: 048
     Dates: start: 20050302
  4. DIFLUCAN [Concomitant]
     Indication: CANDIDIASIS
     Route: 048
     Dates: start: 20070227
  5. FUROSEMIDE [Concomitant]
     Indication: OEDEMA
     Route: 048
     Dates: start: 20070227
  6. AMPHOTERICIN B [Concomitant]
     Indication: CANDIDIASIS
     Route: 048
     Dates: start: 20070227
  7. INSULIN ACTRAPHANE [Concomitant]
     Indication: DIABETES MELLITUS
     Route: 058
     Dates: start: 20040513
  8. INSULIN PROTAPHANE [Concomitant]
  9. CLONT [Concomitant]
  10. UNACID PD [Concomitant]
  11. CIPRO [Concomitant]
  12. KALIUM-BT [Concomitant]

REACTIONS (3)
  - KAPOSI'S SARCOMA [None]
  - NOCARDIOSIS [None]
  - TYPE 2 DIABETES MELLITUS [None]
